FAERS Safety Report 8475056-X (Version None)
Quarter: 2012Q2

REPORT INFORMATION
  Report Type: 
  Country: None (occurrence: None)
  Receive Date: 20120628
  Receipt Date: 20120622
  Transmission Date: 20120825
  Serious: Yes (Other)
  Sender: FDA-Public Use
  Company Number: US-PFIZER INC-2012152162

PATIENT
  Age: 34 Year
  Sex: Male

DRUGS (7)
  1. ATORVASTATIN [Concomitant]
     Dosage: UNK
  2. METHYLPHENIDATE [Concomitant]
     Dosage: UNK
  3. RAMIPRIL [Concomitant]
     Dosage: UNK
  4. SIROLIMUS [Suspect]
     Indication: IMMUNOSUPPRESSION
     Dosage: UNK
  5. VENLAFAXINE [Concomitant]
     Dosage: UNK
  6. COLCHICINE [Concomitant]
     Dosage: UNK
  7. TACROLIMUS [Concomitant]
     Indication: IMMUNOSUPPRESSION
     Dosage: UNK

REACTIONS (1)
  - DRUG-INDUCED LIVER INJURY [None]
